FAERS Safety Report 9541778 (Version 2)
Quarter: 2014Q2

REPORT INFORMATION
  Report Type: Spontaneous
  Country: US (occurrence: US)
  Receive Date: 20130923
  Receipt Date: 20140416
  Transmission Date: 20141212
  Serious: Yes (Hospitalization)
  Sender: FDA-Public Use
  Company Number: US-BAYER-2013-114492

PATIENT
  Age: 52 Year
  Sex: Male
  Weight: 73.92 kg

DRUGS (2)
  1. XOFIGO [Suspect]
     Indication: PROSTATE CANCER
     Dosage: 2 DOSES
     Route: 042
     Dates: start: 20130802, end: 20130830
  2. XOFIGO [Suspect]
     Indication: METASTASES TO BONE

REACTIONS (1)
  - Metastases to central nervous system [Not Recovered/Not Resolved]
